FAERS Safety Report 17231034 (Version 1)
Quarter: 2020Q1

REPORT INFORMATION
  Report Type: Spontaneous
  Country: US (occurrence: US)
  Receive Date: 20200103
  Receipt Date: 20200103
  Transmission Date: 20200409
  Serious: No
  Sender: FDA-Public Use
  Company Number: US-PFIZER INC-2019559310

PATIENT
  Age: 31 Year
  Sex: Male
  Weight: 87.54 kg

DRUGS (2)
  1. PAROMOMYCIN SULFATE. [Suspect]
     Active Substance: PAROMOMYCIN SULFATE
     Indication: AMOEBIASIS
     Dosage: 1 G, 3X/DAY (4 CAPSULES, THREE TIMES A DAY)
     Route: 048
     Dates: start: 20191225
  2. METRONIDAZOLE. [Suspect]
     Active Substance: METRONIDAZOLE
     Indication: AMOEBIASIS
     Dosage: 500 MG, 3X/DAY
     Route: 048
     Dates: start: 20191225

REACTIONS (1)
  - Diarrhoea [Recovering/Resolving]

NARRATIVE: CASE EVENT DATE: 20191226
